FAERS Safety Report 6973142-4 (Version None)
Quarter: 2010Q3

REPORT INFORMATION
  Report Type: 
  Country: None (occurrence: None)
  Receive Date: 20100909
  Receipt Date: 20100831
  Transmission Date: 20110219
  Serious: Yes (Death, Hospitalization)
  Sender: FDA-Public Use
  Company Number: NL-ROCHE-658857

PATIENT
  Sex: Male
  Weight: 84.3 kg

DRUGS (7)
  1. BEVACIZUMAB [Suspect]
     Indication: NON-SMALL CELL LUNG CANCER
     Dosage: FORM: VIAL DATE OF LAST DOSE PRIOR TO SAE: 24 SEPT 2009
     Route: 042
     Dates: start: 20090723, end: 20091013
  2. CARBOPLATIN [Suspect]
     Indication: NON-SMALL CELL LUNG CANCER
     Dosage: FORM: VIAL DATE OF LAST DOSE PRIOR TO SAE: 24 SEPT 2009
     Route: 042
     Dates: start: 20090723, end: 20091013
  3. PACLITAXEL [Suspect]
     Indication: NON-SMALL CELL LUNG CANCER
     Dosage: FORM: VIAL DATE OF LAST DOSE PRIOR TO SAE: 24 SEPT 2009
     Route: 042
     Dates: start: 20090723, end: 20091013
  4. CODEINE [Concomitant]
     Dates: start: 20090101
  5. ENTOCORT EC [Concomitant]
     Dates: start: 20090729
  6. MOXIFLOXACINE [Concomitant]
     Dates: start: 20090803, end: 20090810
  7. MOXIFLOXACINE [Concomitant]
     Dates: start: 20090819, end: 20090826

REACTIONS (2)
  - DEATH [None]
  - PNEUMONIA LEGIONELLA [None]
